FAERS Safety Report 6510986-7 (Version None)
Quarter: 2009Q4

REPORT INFORMATION
  Report Type: 
  Country: None (occurrence: None)
  Receive Date: 20091222
  Receipt Date: 20090210
  Transmission Date: 20100525
  Serious: No
  Sender: FDA-Public Use
  Company Number: US-ASTRAZENECA-2009UW03913

PATIENT
  Age: 77 Year
  Sex: Female
  Weight: 83.5 kg

DRUGS (6)
  1. CRESTOR [Suspect]
     Route: 048
  2. BLOOD PRESSURE MEDICATION [Concomitant]
  3. ZESTORETIC [Concomitant]
  4. PRILOSEC [Concomitant]
  5. FLAGYL [Concomitant]
  6. EFFEXOR [Concomitant]

REACTIONS (4)
  - DECREASED APPETITE [None]
  - FATIGUE [None]
  - HEADACHE [None]
  - PAIN [None]
